FAERS Safety Report 18840017 (Version 1)
Quarter: 2021Q1

REPORT INFORMATION
  Report Type: Spontaneous
  Country: US (occurrence: US)
  Receive Date: 20210203
  Receipt Date: 20210203
  Transmission Date: 20210419
  Serious: No
  Sender: FDA-Public Use
  Company Number: US-BAYER-2021-045296

PATIENT
  Age: 90 Year
  Sex: Female

DRUGS (2)
  1. ALEVE [Suspect]
     Active Substance: NAPROXEN SODIUM
     Indication: PAIN
     Dosage: 1 DF, HS
     Route: 048
     Dates: start: 20210126
  2. ALEVE [Suspect]
     Active Substance: NAPROXEN SODIUM
     Indication: PAIN
     Dosage: 2 DF, HS
     Route: 048
     Dates: start: 2019

REACTIONS (2)
  - Incorrect product administration duration [None]
  - Product packaging quantity issue [None]

NARRATIVE: CASE EVENT DATE: 2019
